FAERS Safety Report 19616072 (Version 1)
Quarter: 2021Q3

REPORT INFORMATION
  Report Type: Spontaneous
  Country: US (occurrence: US)
  Receive Date: 20210727
  Receipt Date: 20210727
  Transmission Date: 20211014
  Serious: No
  Sender: FDA-Public Use
  Company Number: US-TAKEDA-2021TUS044585

PATIENT
  Age: 24 Year
  Sex: Female
  Weight: 52.16 kg

DRUGS (2)
  1. PFIZER?BIONTECH COVID?19 VACCINE [Suspect]
     Active Substance: TOZINAMERAN
     Indication: PRODUCT USED FOR UNKNOWN INDICATION
     Dosage: UNK
     Route: 030
     Dates: start: 20210226, end: 20210319
  2. VYVANSE [Suspect]
     Active Substance: LISDEXAMFETAMINE DIMESYLATE
     Indication: PRODUCT USED FOR UNKNOWN INDICATION
     Dosage: 40 MILLIGRAM, QD
     Route: 048

REACTIONS (16)
  - Nasopharyngitis [Unknown]
  - SARS-CoV-2 test positive [Unknown]
  - Hyperhidrosis [Unknown]
  - Diarrhoea [Unknown]
  - Oropharyngeal pain [Unknown]
  - Rhinorrhoea [Unknown]
  - Illness [Unknown]
  - Dysphonia [Unknown]
  - Malaise [Unknown]
  - Nasal congestion [Unknown]
  - Fatigue [Unknown]
  - Nausea [Recovering/Resolving]
  - Lethargy [Unknown]
  - Abdominal pain upper [Unknown]
  - Cough [Unknown]
  - Chest pain [Unknown]

NARRATIVE: CASE EVENT DATE: 20210706
